FAERS Safety Report 9412038 (Version 1)
Quarter: 2013Q3

REPORT INFORMATION
  Report Type: Spontaneous
  Country: US (occurrence: US)
  Receive Date: 20130722
  Receipt Date: 20130722
  Transmission Date: 20140515
  Serious: Yes (Other)
  Sender: FDA-Public Use
  Company Number: US-RANBAXY-2013US-71536

PATIENT
  Age: 16 Year
  Sex: Male

DRUGS (1)
  1. TRIAMCINOLONE [Suspect]
     Indication: EPISTAXIS
     Dosage: UNK
     Route: 045

REACTIONS (6)
  - Embolism [Unknown]
  - Nausea [Unknown]
  - Vomiting [Unknown]
  - Eyelid ptosis [Unknown]
  - Eye pain [Unknown]
  - Blindness [Recovering/Resolving]
